FAERS Safety Report 23132968 (Version 5)
Quarter: 2025Q4

REPORT INFORMATION
  Report Type: Report from Study
  Country: US (occurrence: None)
  Receive Date: 20231101
  Receipt Date: 20251209
  Transmission Date: 20260117
  Serious: Yes (Other)
  Sender: UCB
  Company Number: US-UCBSA-2023051973

PATIENT
  Age: 9 Year
  Weight: 48 kg

DRUGS (9)
  1. FENFLURAMINE [Suspect]
     Active Substance: FENFLURAMINE
     Indication: Severe myoclonic epilepsy of infancy
     Dosage: 0.62 MG/KG/DAY TOTAL: 19.8 MG/DAY
  2. FENFLURAMINE [Suspect]
     Active Substance: FENFLURAMINE
     Dosage: 0.53 MG/KG/DAY TOTAL: 19.8 MG/DAY
  3. FENFLURAMINE [Suspect]
     Active Substance: FENFLURAMINE
     Dosage: 0.56 MG/KG/DAY TOTAL: 21.2 MG/DAY
  4. FENFLURAMINE [Suspect]
     Active Substance: FENFLURAMINE
     Dosage: 0.45 MG/KG/DAY TOTAL: 21.2 MG/DAY
  5. FENFLURAMINE [Suspect]
     Active Substance: FENFLURAMINE
     Dosage: 4.8 MILLILITER, 2X/DAY (BID)
  6. FENFLURAMINE [Suspect]
     Active Substance: FENFLURAMINE
     Dosage: 0.44 MILLIGRAM/KILOGRAM/DAY
  7. FENFLURAMINE [Suspect]
     Active Substance: FENFLURAMINE
     Dosage: 0.39 MILLIGRAM PER KILOGRAM PER DAY
  8. FENFLURAMINE [Suspect]
     Active Substance: FENFLURAMINE
     Dosage: 0.47 MILLIGRAM/KILOGRAM/DAY (26.4 MILLIGRAM/DAY)
  9. FENFLURAMINE [Suspect]
     Active Substance: FENFLURAMINE
     Dosage: 0.46 MILLIGRAM/KILOGRAM/DAY (26.4 MILLIGRAM/DAY)

REACTIONS (1)
  - Aortic valve incompetence [Recovered/Resolved]
